FAERS Safety Report 17890691 (Version 2)
Quarter: 2021Q2

REPORT INFORMATION
  Report Type: Spontaneous
  Country: US (occurrence: US)
  Receive Date: 20200612
  Receipt Date: 20210607
  Transmission Date: 20210717
  Serious: No
  Sender: FDA-Public Use
  Company Number: US-PERRIGO-19US010449

PATIENT
  Age: 30 Year
  Sex: Male
  Weight: 74.83 kg

DRUGS (4)
  1. ADVIL (MEFENAMIC ACID) [Suspect]
     Active Substance: MEFENAMIC ACID
     Indication: BACK PAIN
     Dosage: 400 MG, SINGLE
     Route: 048
     Dates: start: 20201211, end: 20201211
  2. MINOXIDIL. [Suspect]
     Active Substance: MINOXIDIL
     Indication: ALOPECIA
     Dosage: 1 CAPFUL, QD
     Route: 061
     Dates: start: 2014, end: 201906
  3. MINOXIDIL. [Suspect]
     Active Substance: MINOXIDIL
     Dosage: 1.5 TO 2 CAPFULS, NIGHTLY
     Route: 061
     Dates: start: 2016, end: 20201221
  4. MINOXIDIL. [Suspect]
     Active Substance: MINOXIDIL
     Dosage: 1 CAPFUL, NIGHTLY
     Route: 061
     Dates: start: 20190813

REACTIONS (7)
  - Expired product administered [Recovered/Resolved]
  - International normalised ratio increased [Unknown]
  - Condition aggravated [Recovering/Resolving]
  - Inappropriate schedule of product administration [Recovered/Resolved]
  - Therapeutic product effect decreased [Unknown]
  - Product administered at inappropriate site [Recovered/Resolved]
  - Incorrect dose administered [Unknown]

NARRATIVE: CASE EVENT DATE: 2014
